FAERS Safety Report 10005299 (Version 1)
Quarter: 2014Q1

REPORT INFORMATION
  Report Type: Report from Study
  Country: US (occurrence: US)
  Receive Date: 20140312
  Receipt Date: 20140312
  Transmission Date: 20141002
  Serious: Yes (Other)
  Sender: FDA-Public Use
  Company Number: US-BAYER-2014-035601

PATIENT
  Sex: 0

DRUGS (1)
  1. SORAFENIB (RAF KINASE INHIBITOR) [Suspect]
     Indication: SARCOMA
     Dosage: 200 MG, BID
     Route: 048

REACTIONS (3)
  - Anaemia [None]
  - Supraventricular tachycardia [None]
  - Radiation skin injury [None]
